FAERS Safety Report 6439846-7 (Version None)
Quarter: 2009Q4

REPORT INFORMATION
  Report Type: 
  Country: None (occurrence: None)
  Receive Date: 20091112
  Receipt Date: 20091112
  Transmission Date: 20100525
  Serious: No
  Sender: FDA-Public Use
  Company Number: None

PATIENT
  Sex: Female
  Weight: 70.3075 kg

DRUGS (1)
  1. ACTONEL [Suspect]
     Indication: BONE FORMATION TEST ABNORMAL
     Dosage: 150MG. ONCE-MONTH 2
     Dates: start: 20090801, end: 20090915

REACTIONS (1)
  - ABDOMINAL PAIN UPPER [None]
